FAERS Safety Report 14674652 (Version 1)
Quarter: 2018Q1

REPORT INFORMATION
  Report Type: Spontaneous
  Country: US (occurrence: US)
  Receive Date: 20180323
  Receipt Date: 20180323
  Transmission Date: 20180509
  Serious: No
  Sender: FDA-Public Use
  Company Number: US-PERRIGO-17US023767

PATIENT
  Age: 77 Year
  Sex: Male
  Weight: 90.7 kg

DRUGS (1)
  1. NYSTATIN. [Suspect]
     Active Substance: NYSTATIN
     Indication: FUNGAL INFECTION
     Dosage: GENEROUS AMOUNT, TWICE
     Route: 061
     Dates: start: 201705, end: 201705

REACTIONS (1)
  - Application site odour [Not Recovered/Not Resolved]

NARRATIVE: CASE EVENT DATE: 201705
